FAERS Safety Report 22093262 (Version 2)
Quarter: 2023Q1

REPORT INFORMATION
  Report Type: Report from Study
  Country: US (occurrence: US)
  Receive Date: 20230314
  Receipt Date: 20230327
  Transmission Date: 20230418
  Serious: Yes (Hospitalization, Other)
  Sender: FDA-Public Use
  Company Number: US-ABBVIE-4338252

PATIENT
  Age: 48 Year
  Sex: Male

DRUGS (1)
  1. RINVOQ [Suspect]
     Active Substance: UPADACITINIB
     Indication: Dermatitis atopic
     Dosage: DISCONTINUED IN FEB OR MAR 2023, FORM STRENGTH 15 MILLIGRAM
     Route: 048

REACTIONS (3)
  - Cellulitis [Recovered/Resolved]
  - Diabetic gangrene [Recovered/Resolved]
  - Nail injury [Recovered/Resolved]

NARRATIVE: CASE EVENT DATE: 20230201
